FAERS Safety Report 18084055 (Version 1)
Quarter: 2020Q3

REPORT INFORMATION
  Report Type: Report from Study
  Country: US (occurrence: US)
  Receive Date: 20200729
  Receipt Date: 20200729
  Transmission Date: 20201103
  Serious: Yes (Hospitalization, Other)
  Sender: FDA-Public Use
  Company Number: US-SA-2018SA391777

PATIENT

DRUGS (5)
  1. PROPYLTHIOURACIL. [Concomitant]
     Active Substance: PROPYLTHIOURACIL
     Dosage: SHE TOOK FOR 5 YEARS
  2. ALEMTUZUMAB [Suspect]
     Active Substance: ALEMTUZUMAB
     Dosage: 12 MG, QD
     Route: 041
     Dates: start: 20190628, end: 20190628
  3. ALEMTUZUMAB [Suspect]
     Active Substance: ALEMTUZUMAB
     Indication: MULTIPLE SCLEROSIS
     Dosage: 12 MG, QD
     Route: 041
     Dates: start: 20190618, end: 20190621
  4. MUCINEX [Concomitant]
     Active Substance: GUAIFENESIN
     Indication: HYPERSENSITIVITY
     Dosage: UNK
     Route: 065
  5. LEVAQUIN [Concomitant]
     Active Substance: LEVOFLOXACIN
     Indication: ILLNESS
     Dosage: UNK
     Route: 065

REACTIONS (21)
  - Sepsis [Unknown]
  - Productive cough [Unknown]
  - Respiratory tract chlamydial infection [Unknown]
  - Blood pressure increased [Not Recovered/Not Resolved]
  - Fatigue [Unknown]
  - Throat clearing [Not Recovered/Not Resolved]
  - Product use issue [Unknown]
  - Pneumonia [Not Recovered/Not Resolved]
  - Fluid retention [Not Recovered/Not Resolved]
  - Musculoskeletal chest pain [Unknown]
  - Cough [Not Recovered/Not Resolved]
  - Pyrexia [Unknown]
  - Multiple sclerosis [Not Recovered/Not Resolved]
  - Condition aggravated [Not Recovered/Not Resolved]
  - Dysphonia [Not Recovered/Not Resolved]
  - Dyspepsia [Not Recovered/Not Resolved]
  - Pneumonia legionella [Unknown]
  - Pneumonia mycoplasmal [Unknown]
  - Heart rate increased [Not Recovered/Not Resolved]
  - Sputum discoloured [Unknown]
  - Peripheral swelling [Unknown]

NARRATIVE: CASE EVENT DATE: 201906
